FAERS Safety Report 8659052 (Version 2)
Quarter: 2012Q4

REPORT INFORMATION
  Report Type: 
  Country: US (occurrence: US)
  Receive Date: 20120710
  Receipt Date: 20120913
  Transmission Date: 20130627
  Serious: Yes (Other)
  Sender: FDA-Public Use
  Company Number: CHPA2012US014247

PATIENT
  Sex: Male

DRUGS (1)
  1. VOLTAREN GEL [Suspect]
     Dosage: Unk, Unk
     Route: 061
     Dates: start: 201206

REACTIONS (3)
  - Cellulitis [Not Recovered/Not Resolved]
  - Erythema [Not Recovered/Not Resolved]
  - Oedema peripheral [Not Recovered/Not Resolved]
